FAERS Safety Report 11383352 (Version 2)
Quarter: 2015Q4

REPORT INFORMATION
  Report Type: Spontaneous
  Country: US (occurrence: BR)
  Receive Date: 20150814
  Receipt Date: 20151028
  Transmission Date: 20160304
  Serious: Yes (Other)
  Sender: FDA-Public Use
  Company Number: US-BIOGENIDEC-2015BI092255

PATIENT
  Age: 27 Year
  Sex: Female
  Weight: 69 kg

DRUGS (3)
  1. FEMIASE (NOS) [Concomitant]
     Indication: ENDOMETRIOSIS
     Dates: start: 2003
  2. GLATIRAMER ACETATE. [Concomitant]
     Active Substance: GLATIRAMER ACETATE
  3. AVONEX [Suspect]
     Active Substance: INTERFERON BETA-1A
     Indication: MULTIPLE SCLEROSIS
     Route: 030
     Dates: start: 20060616

REACTIONS (4)
  - Influenza [Recovered/Resolved]
  - Urinary tract disorder [Unknown]
  - Drug-induced liver injury [Recovered/Resolved]
  - Dysgeusia [Unknown]
